FAERS Safety Report 20960004 (Version 1)
Quarter: 2022Q2

REPORT INFORMATION
  Report Type: Spontaneous
  Country: CA (occurrence: CA)
  Receive Date: 20220615
  Receipt Date: 20220615
  Transmission Date: 20220721
  Serious: Yes (Disabling, Other)
  Sender: FDA-Public Use
  Company Number: CA-BRISTOL-MYERS SQUIBB COMPANY-2022-056003

PATIENT
  Age: 43 Year
  Sex: Female

DRUGS (102)
  1. ORENCIA [Suspect]
     Active Substance: ABATACEPT
     Indication: Rheumatoid arthritis
     Route: 058
  2. ORENCIA [Suspect]
     Active Substance: ABATACEPT
     Indication: Rheumatoid arthritis
     Route: 042
  3. ORENCIA [Suspect]
     Active Substance: ABATACEPT
     Route: 041
  4. ACTEMRA [Concomitant]
     Active Substance: TOCILIZUMAB
     Indication: Rheumatoid arthritis
     Route: 042
  5. ACTEMRA [Concomitant]
     Active Substance: TOCILIZUMAB
     Route: 058
  6. ADALIMUMAB [Concomitant]
     Active Substance: ADALIMUMAB
     Indication: Product used for unknown indication
     Dosage: SOLUTION SUBCUTANEOUS
     Route: 065
  7. ALENDRONATE SODIUM [Concomitant]
     Active Substance: ALENDRONATE SODIUM
     Indication: Rheumatoid arthritis
     Route: 065
  8. ALENDRONATE SODIUM [Concomitant]
     Active Substance: ALENDRONATE SODIUM
     Route: 048
  9. APREMILAST [Concomitant]
     Active Substance: APREMILAST
     Indication: Product used for unknown indication
     Route: 065
  10. ARAVA [Concomitant]
     Active Substance: LEFLUNOMIDE
     Indication: Rheumatoid arthritis
     Route: 048
  11. ATASOL 15 [Concomitant]
     Indication: Product used for unknown indication
     Route: 065
  12. CAFFEINE CITRATE [Concomitant]
     Active Substance: CAFFEINE CITRATE
     Indication: Product used for unknown indication
     Route: 065
  13. CETIRIZINE HYDROCHLORIDE [Concomitant]
     Active Substance: CETIRIZINE HYDROCHLORIDE
     Indication: Rheumatoid arthritis
     Route: 005
  14. CETIRIZINE HYDROCHLORIDE [Concomitant]
     Active Substance: CETIRIZINE HYDROCHLORIDE
     Route: 048
  15. CETIRIZINE HYDROCHLORIDE [Concomitant]
     Active Substance: CETIRIZINE HYDROCHLORIDE
     Route: 016
  16. CETIRIZINE HYDROCHLORIDE [Concomitant]
     Active Substance: CETIRIZINE HYDROCHLORIDE
     Route: 065
  17. CETIRIZINE HYDROCHLORIDE [Concomitant]
     Active Substance: CETIRIZINE HYDROCHLORIDE
     Route: 048
  18. CETIRIZINE HYDROCHLORIDE [Concomitant]
     Active Substance: CETIRIZINE HYDROCHLORIDE
     Route: 065
  19. CIMZIA [Concomitant]
     Active Substance: CERTOLIZUMAB PEGOL
     Indication: Rheumatoid arthritis
     Route: 058
  20. CIMZIA [Concomitant]
     Active Substance: CERTOLIZUMAB PEGOL
     Route: 058
  21. ACETAMINOPHEN\CODEINE PHOSPHATE [Concomitant]
     Active Substance: ACETAMINOPHEN\CODEINE PHOSPHATE
     Indication: Product used for unknown indication
     Route: 065
  22. CORTISONE ACETATE [Concomitant]
     Active Substance: CORTISONE ACETATE
     Indication: Rheumatoid arthritis
     Route: 048
  23. DESOXIMETASONE [Concomitant]
     Active Substance: DESOXIMETASONE
     Indication: Rheumatoid arthritis
     Route: 048
  24. DESOXIMETASONE [Concomitant]
     Active Substance: DESOXIMETASONE
     Route: 058
  25. DICLOFENAC DIETHYLAMINE [Concomitant]
     Active Substance: DICLOFENAC DIETHYLAMINE
     Indication: Product used for unknown indication
     Route: 065
  26. ACETAMINOPHEN [Concomitant]
     Active Substance: ACETAMINOPHEN
     Indication: Rheumatoid arthritis
     Route: 065
  27. DICLOFENAC POTASSIUM [Concomitant]
     Active Substance: DICLOFENAC POTASSIUM
     Indication: Product used for unknown indication
     Route: 065
  28. DICLOFENAC SODIUM [Concomitant]
     Active Substance: DICLOFENAC SODIUM
     Indication: Product used for unknown indication
     Route: 065
  29. DICLOFENAC SODIUM [Concomitant]
     Active Substance: DICLOFENAC SODIUM
     Route: 065
  30. ENBREL [Concomitant]
     Active Substance: ETANERCEPT
     Indication: Rheumatoid arthritis
     Route: 058
  31. ERELZI [Concomitant]
     Active Substance: ETANERCEPT-SZZS
     Indication: Rheumatoid arthritis
     Route: 058
  32. FLUMETHASONE PIVALATE [Concomitant]
     Active Substance: FLUMETHASONE PIVALATE
     Indication: Product used for unknown indication
     Route: 058
  33. FLUMETHASONE PIVALATE [Concomitant]
     Active Substance: FLUMETHASONE PIVALATE
     Route: 003
  34. FOLIC ACID [Concomitant]
     Active Substance: FOLIC ACID
     Indication: Rheumatoid arthritis
     Route: 048
  35. FOLIC ACID [Concomitant]
     Active Substance: FOLIC ACID
     Route: 065
  36. FOLIC ACID [Concomitant]
     Active Substance: FOLIC ACID
     Route: 065
  37. FOLIC ACID [Concomitant]
     Active Substance: FOLIC ACID
     Route: 058
  38. FOLIC ACID [Concomitant]
     Active Substance: FOLIC ACID
     Route: 065
  39. FOLIC ACID [Concomitant]
     Active Substance: FOLIC ACID
     Route: 048
  40. GOLIMUMAB [Concomitant]
     Active Substance: GOLIMUMAB
     Indication: Rheumatoid arthritis
     Route: 058
  41. HUMIRA [Concomitant]
     Active Substance: ADALIMUMAB
     Indication: Rheumatoid arthritis
     Route: 058
  42. HUMIRA [Concomitant]
     Active Substance: ADALIMUMAB
     Route: 058
  43. HYDROCORTISONE [Concomitant]
     Active Substance: HYDROCORTISONE
     Indication: Rheumatoid arthritis
     Route: 065
  44. HYDROCORTISONE ACETATE [Concomitant]
     Active Substance: HYDROCORTISONE ACETATE
     Indication: Rheumatoid arthritis
     Route: 058
  45. HYDROCORTISONE ACETATE [Concomitant]
     Active Substance: HYDROCORTISONE ACETATE
     Route: 003
  46. HYDROCORTISONE ACETATE [Concomitant]
     Active Substance: HYDROCORTISONE ACETATE
     Route: 048
  47. HYDROCORTISONE SODIUM SUCCINATE [Concomitant]
     Active Substance: HYDROCORTISONE SODIUM SUCCINATE
     Indication: Product used for unknown indication
     Route: 065
  48. HYDROXYCHLOROQUINE SULFATE [Concomitant]
     Active Substance: HYDROXYCHLOROQUINE SULFATE
     Indication: Rheumatoid arthritis
     Route: 066
  49. HYDROXYCHLOROQUINE SULFATE [Concomitant]
     Active Substance: HYDROXYCHLOROQUINE SULFATE
     Route: 048
  50. HYDROXYCHLOROQUINE SULFATE [Concomitant]
     Active Substance: HYDROXYCHLOROQUINE SULFATE
     Route: 065
  51. HYDROXYCHLOROQUINE SULFATE [Concomitant]
     Active Substance: HYDROXYCHLOROQUINE SULFATE
     Route: 048
  52. HYDROXYCHLOROQUINE SULFATE [Concomitant]
     Active Substance: HYDROXYCHLOROQUINE SULFATE
     Route: 048
  53. HYDROXYCHLOROQUINE SULFATE [Concomitant]
     Active Substance: HYDROXYCHLOROQUINE SULFATE
     Route: 058
  54. INFLIXIMAB [Concomitant]
     Active Substance: INFLIXIMAB
     Indication: Product used for unknown indication
     Route: 065
  55. KEVZARA [Concomitant]
     Active Substance: SARILUMAB
     Indication: Rheumatoid arthritis
     Route: 016
  56. LEFLUNOMIDE [Concomitant]
     Active Substance: LEFLUNOMIDE
     Indication: Rheumatoid arthritis
     Route: 048
  57. LEFLUNOMIDE [Concomitant]
     Active Substance: LEFLUNOMIDE
     Route: 048
  58. METHOTREXATE [Concomitant]
     Active Substance: METHOTREXATE
     Indication: Rheumatoid arthritis
     Route: 048
  59. METHOTREXATE [Concomitant]
     Active Substance: METHOTREXATE
     Route: 013
  60. METHOTREXATE [Concomitant]
     Active Substance: METHOTREXATE
     Route: 058
  61. METHOTREXATE [Concomitant]
     Active Substance: METHOTREXATE
     Route: 035
  62. METHOTREXATE [Concomitant]
     Active Substance: METHOTREXATE
     Route: 048
  63. METHOTREXATE [Concomitant]
     Active Substance: METHOTREXATE
     Route: 048
  64. METHOTREXATE [Concomitant]
     Active Substance: METHOTREXATE
     Route: 013
  65. METHOTREXATE [Concomitant]
     Active Substance: METHOTREXATE
     Route: 048
  66. METHOTREXATE [Concomitant]
     Active Substance: METHOTREXATE
     Route: 048
  67. METHOTREXATE [Concomitant]
     Active Substance: METHOTREXATE
     Route: 048
  68. OTEZLA [Concomitant]
     Active Substance: APREMILAST
     Indication: Product used for unknown indication
     Route: 048
  69. PANTOPRAZOLE [Concomitant]
     Active Substance: PANTOPRAZOLE
     Indication: Dyspepsia
     Route: 065
  70. PHTHALYLSULFATHIAZOLE [Concomitant]
     Active Substance: PHTHALYLSULFATHIAZOLE
     Indication: Rheumatoid arthritis
     Route: 048
  71. PHTHALYLSULFATHIAZOLE [Concomitant]
     Active Substance: PHTHALYLSULFATHIAZOLE
     Route: 016
  72. PHTHALYLSULFATHIAZOLE [Concomitant]
     Active Substance: PHTHALYLSULFATHIAZOLE
     Route: 048
  73. PHTHALYLSULFATHIAZOLE [Concomitant]
     Active Substance: PHTHALYLSULFATHIAZOLE
     Route: 042
  74. HYDROXYCHLOROQUINE DIPHOSPHATE [Concomitant]
     Active Substance: HYDROXYCHLOROQUINE DIPHOSPHATE
     Indication: Product used for unknown indication
     Route: 048
  75. HYDROXYCHLOROQUINE DIPHOSPHATE [Concomitant]
     Active Substance: HYDROXYCHLOROQUINE DIPHOSPHATE
     Route: 048
  76. PREDNISONE [Concomitant]
     Active Substance: PREDNISONE
     Indication: Rheumatoid arthritis
     Route: 048
  77. PREDNISONE [Concomitant]
     Active Substance: PREDNISONE
     Indication: Condition aggravated
     Route: 048
  78. PSEUDOEPHEDRINE [Concomitant]
     Active Substance: PSEUDOEPHEDRINE
     Indication: Product used for unknown indication
     Route: 065
  79. PSEUDOEPHEDRINE HYDROCHLORIDE [Concomitant]
     Active Substance: PSEUDOEPHEDRINE HYDROCHLORIDE
     Indication: Rheumatoid arthritis
     Route: 065
  80. PSEUDOEPHEDRINE HYDROCHLORIDE [Concomitant]
     Active Substance: PSEUDOEPHEDRINE HYDROCHLORIDE
     Route: 065
  81. REMICADE [Concomitant]
     Active Substance: INFLIXIMAB
     Indication: Rheumatoid arthritis
     Dosage: POWDER  FOR SOLUTION INTRAVENOUS
     Route: 042
  82. RITUXIMAB [Concomitant]
     Active Substance: RITUXIMAB
     Indication: Rheumatoid arthritis
     Route: 042
  83. RITUXIMAB [Concomitant]
     Active Substance: RITUXIMAB
     Route: 058
  84. RITUXIMAB [Concomitant]
     Active Substance: RITUXIMAB
     Route: 050
  85. SULFASALAZINE [Concomitant]
     Active Substance: SULFASALAZINE
     Indication: Product used for unknown indication
     Route: 065
  86. SIMPONI [Concomitant]
     Active Substance: GOLIMUMAB
     Indication: Rheumatoid arthritis
     Route: 065
  87. STELARA [Concomitant]
     Active Substance: USTEKINUMAB
     Indication: Product used for unknown indication
     Route: 058
  88. SULFASALAZINE [Concomitant]
     Active Substance: SULFASALAZINE
     Indication: Rheumatoid arthritis
     Route: 048
  89. SULFASALAZINE [Concomitant]
     Active Substance: SULFASALAZINE
     Route: 048
  90. SULFASALAZINE [Concomitant]
     Active Substance: SULFASALAZINE
     Route: 048
  91. SULFASALAZINE [Concomitant]
     Active Substance: SULFASALAZINE
     Route: 048
  92. SULFASALAZINE [Concomitant]
     Active Substance: SULFASALAZINE
     Route: 048
  93. TOCILIZUMAB [Concomitant]
     Active Substance: TOCILIZUMAB
     Indication: Rheumatoid arthritis
     Route: 065
  94. TOFACITINIB [Concomitant]
     Active Substance: TOFACITINIB
     Indication: Product used for unknown indication
     Route: 048
  95. TOFACITINIB [Concomitant]
     Active Substance: TOFACITINIB
     Route: 048
  96. TOFACITINIB CITRATE [Concomitant]
     Active Substance: TOFACITINIB CITRATE
     Indication: Product used for unknown indication
     Route: 048
  97. USTEKINUMAB [Concomitant]
     Active Substance: USTEKINUMAB
     Indication: Product used for unknown indication
     Route: 042
  98. PREDNISONE [Concomitant]
     Active Substance: PREDNISONE
     Indication: Product used for unknown indication
     Route: 065
  99. XELJANZ [Concomitant]
     Active Substance: TOFACITINIB CITRATE
     Indication: Product used for unknown indication
     Route: 048
  100. XELJANZ [Concomitant]
     Active Substance: TOFACITINIB CITRATE
     Route: 048
  101. XELJANZ [Concomitant]
     Active Substance: TOFACITINIB CITRATE
     Route: 048
  102. XELJANZ [Concomitant]
     Active Substance: TOFACITINIB CITRATE
     Route: 048

REACTIONS (65)
  - Adverse event [Not Recovered/Not Resolved]
  - Abdominal discomfort [Not Recovered/Not Resolved]
  - Abdominal pain upper [Not Recovered/Not Resolved]
  - Alopecia [Not Recovered/Not Resolved]
  - Anti-cyclic citrullinated peptide antibody [Not Recovered/Not Resolved]
  - Arthralgia [Not Recovered/Not Resolved]
  - Arthropathy [Not Recovered/Not Resolved]
  - Blister [Not Recovered/Not Resolved]
  - Blood cholesterol increased [Not Recovered/Not Resolved]
  - Condition aggravated [Not Recovered/Not Resolved]
  - Decreased appetite [Not Recovered/Not Resolved]
  - Diarrhoea [Not Recovered/Not Resolved]
  - Discomfort [Not Recovered/Not Resolved]
  - Drug ineffective [Not Recovered/Not Resolved]
  - Drug intolerance [Not Recovered/Not Resolved]
  - Drug tolerance decreased [Not Recovered/Not Resolved]
  - Duodenal ulcer perforation [Not Recovered/Not Resolved]
  - Dyspepsia [Not Recovered/Not Resolved]
  - Fatigue [Not Recovered/Not Resolved]
  - Fibromyalgia [Not Recovered/Not Resolved]
  - Gait disturbance [Not Recovered/Not Resolved]
  - General physical health deterioration [Not Recovered/Not Resolved]
  - Glossodynia [Not Recovered/Not Resolved]
  - Hand deformity [Not Recovered/Not Resolved]
  - Headache [Not Recovered/Not Resolved]
  - Helicobacter infection [Not Recovered/Not Resolved]
  - Hepatic enzyme increased [Not Recovered/Not Resolved]
  - Hypersensitivity [Not Recovered/Not Resolved]
  - Hypertension [Not Recovered/Not Resolved]
  - Hypoaesthesia [Not Recovered/Not Resolved]
  - Infusion related reaction [Not Recovered/Not Resolved]
  - Injury [Not Recovered/Not Resolved]
  - Joint swelling [Not Recovered/Not Resolved]
  - Liver injury [Not Recovered/Not Resolved]
  - Loss of personal independence in daily activities [Not Recovered/Not Resolved]
  - Malaise [Not Recovered/Not Resolved]
  - Migraine [Not Recovered/Not Resolved]
  - Mobility decreased [Not Recovered/Not Resolved]
  - Musculoskeletal stiffness [Not Recovered/Not Resolved]
  - Nausea [Not Recovered/Not Resolved]
  - Oedema [Not Recovered/Not Resolved]
  - Pain [Not Recovered/Not Resolved]
  - Pain in extremity [Not Recovered/Not Resolved]
  - Pemphigus [Not Recovered/Not Resolved]
  - Pericarditis [Not Recovered/Not Resolved]
  - Pneumonia [Not Recovered/Not Resolved]
  - Psoriatic arthropathy [Not Recovered/Not Resolved]
  - Pulmonary fibrosis [Not Recovered/Not Resolved]
  - Rash [Not Recovered/Not Resolved]
  - Rheumatic fever [Not Recovered/Not Resolved]
  - Rheumatoid arthritis [Not Recovered/Not Resolved]
  - Rheumatoid factor positive [Not Recovered/Not Resolved]
  - Sciatica [Not Recovered/Not Resolved]
  - Sinusitis [Not Recovered/Not Resolved]
  - Swelling [Not Recovered/Not Resolved]
  - Swollen joint count increased [Not Recovered/Not Resolved]
  - Synovitis [Not Recovered/Not Resolved]
  - Systemic lupus erythematosus [Not Recovered/Not Resolved]
  - Therapeutic product effect decreased [Not Recovered/Not Resolved]
  - Treatment failure [Not Recovered/Not Resolved]
  - Type 2 diabetes mellitus [Not Recovered/Not Resolved]
  - Vomiting [Not Recovered/Not Resolved]
  - Wheezing [Not Recovered/Not Resolved]
  - Wound [Not Recovered/Not Resolved]
  - Intentional product use issue [Unknown]
